FAERS Safety Report 5940681-4 (Version None)
Quarter: 2008Q4

REPORT INFORMATION
  Report Type: 
  Country: None (occurrence: None)
  Receive Date: 20081104
  Receipt Date: 20081024
  Transmission Date: 20090506
  Serious: Yes (Other)
  Sender: FDA-Public Use
  Company Number: US-AMGEN-QUU315284

PATIENT
  Age: 66 Year
  Sex: Male

DRUGS (9)
  1. EPOGEN [Suspect]
     Indication: RENAL FAILURE CHRONIC
     Route: 058
     Dates: start: 20041129
  2. SODIUM BICARBONATE [Concomitant]
  3. POTASSIUM CHLORIDE [Concomitant]
  4. VITAMINS [Concomitant]
  5. COREG [Concomitant]
  6. ALLOPURINOL [Concomitant]
  7. ZEMPLAR [Concomitant]
  8. RENAGEL [Concomitant]
     Route: 048
  9. DIGITEK [Concomitant]

REACTIONS (2)
  - NEPHRECTOMY [None]
  - RENAL CANCER [None]
